FAERS Safety Report 24041520 (Version 1)
Quarter: 2024Q3

REPORT INFORMATION
  Report Type: Spontaneous
  Country: US (occurrence: None)
  Receive Date: 20240702
  Receipt Date: 20240702
  Transmission Date: 20241017
  Serious: No
  Sender: Public
  Company Number: None

PATIENT
  Age: 28 Year
  Sex: Male
  Weight: 61.23 kg

DRUGS (2)
  1. OLUMIANT [Suspect]
     Active Substance: BARICITINIB
     Indication: Alopecia areata
     Dosage: TAKE 1 TABLET BY MOUTH DAILY AS DIRECTED?
     Route: 048
     Dates: start: 202405
  2. OLUMIANT [Suspect]
     Active Substance: BARICITINIB
     Indication: Acne

REACTIONS (2)
  - Abdominal discomfort [None]
  - Gastroenteritis viral [None]
